FAERS Safety Report 5841778-X (Version None)
Quarter: 2008Q3

REPORT INFORMATION
  Report Type: 
  Country: None (occurrence: None)
  Receive Date: 20080811
  Receipt Date: 20080811
  Transmission Date: 20090109
  Serious: Yes (Other)
  Sender: FDA-Public Use
  Company Number: None

PATIENT
  Age: 40 Year
  Sex: Female
  Weight: 79.3795 kg

DRUGS (1)
  1. JOLESSA   BAR PHARMACEUTICALS [Suspect]
     Indication: ORAL CONTRACEPTION
     Dosage: 91 DAY REGIMEN 1 DAILY PO
     Route: 048
     Dates: start: 20080518, end: 20080706

REACTIONS (11)
  - ABDOMINAL DISTENSION [None]
  - BLOOD IRON DECREASED [None]
  - FATIGUE [None]
  - IRRITABILITY [None]
  - MENOMETRORRHAGIA [None]
  - MIGRAINE [None]
  - MOOD SWINGS [None]
  - MUSCLE SPASMS [None]
  - SWELLING [None]
  - THYROID DISORDER [None]
  - VISION BLURRED [None]
